FAERS Safety Report 17616813 (Version 1)
Quarter: 2020Q2

REPORT INFORMATION
  Report Type: Spontaneous
  Country: US (occurrence: US)
  Receive Date: 20200402
  Receipt Date: 20200402
  Transmission Date: 20200713
  Serious: Yes (Other)
  Sender: FDA-Public Use
  Company Number: None

PATIENT
  Age: 46 Year
  Sex: Female
  Weight: 117.48 kg

DRUGS (4)
  1. A LOT OF MEDICATIONS [Concomitant]
     Active Substance: UNSPECIFIED INGREDIENT
  2. APPLE CIDER VINEGAR PILLS [Concomitant]
  3. MIRENA [Suspect]
     Active Substance: LEVONORGESTREL
     Dates: start: 20200103
  4. CENTRUM [Concomitant]
     Active Substance: VITAMINS

REACTIONS (7)
  - Complication associated with device [None]
  - Progesterone decreased [None]
  - Vaginal haemorrhage [None]
  - Pelvic pain [None]
  - Migraine [None]
  - Hormone level abnormal [None]
  - Disability [None]

NARRATIVE: CASE EVENT DATE: 20200103
